FAERS Safety Report 25975846 (Version 1)
Quarter: 2025Q4

REPORT INFORMATION
  Report Type: Spontaneous
  Country: JP (occurrence: JP)
  Receive Date: 20251029
  Receipt Date: 20251029
  Transmission Date: 20260118
  Serious: Yes (Life-Threatening, Other)
  Sender: MERCK SHARP & DOHME LLC
  Company Number: JP-009507513-2330240

PATIENT
  Age: 56 Year
  Sex: Female

DRUGS (3)
  1. KEYTRUDA [Suspect]
     Active Substance: PEMBROLIZUMAB
     Indication: Uterine cancer
     Dosage: 200MG, Q3W;PATIENT ROA: INTRAVENOUS DRIP
     Dates: start: 202508
  2. CARBOPLATIN [Suspect]
     Active Substance: CARBOPLATIN
     Indication: Uterine cancer
     Dosage: PATIENT ROA: INTRAVENOUS DRIP
     Dates: start: 202508
  3. PACLITAXEL [Suspect]
     Active Substance: PACLITAXEL
     Indication: Uterine cancer
     Dosage: PATIENT ROA: INTRAVENOUS DRIP
     Dates: start: 202508

REACTIONS (3)
  - Malignant neoplasm progression [Unknown]
  - Rash [Recovered/Resolved]
  - Immune-mediated myasthenia gravis [Recovering/Resolving]

NARRATIVE: CASE EVENT DATE: 20250801
